FAERS Safety Report 8292206 (Version 4)
Quarter: 2013Q2

REPORT INFORMATION
  Report Type: Report from Study
  Country: US (occurrence: US)
  Receive Date: 20111215
  Receipt Date: 20130607
  Transmission Date: 20140414
  Serious: Yes (Hospitalization, Other)
  Sender: FDA-Public Use
  Company Number: US-PFIZER INC-2011054760

PATIENT
  Age: 60 Year
  Sex: Female
  Weight: 74.38 kg

DRUGS (3)
  1. CHANTIX [Suspect]
     Indication: SMOKING CESSATION THERAPY
     Dosage: 0.5 MG, 1X/DAY
     Route: 048
     Dates: start: 20110302, end: 20111115
  2. DILANTIN [Concomitant]
     Indication: CONVULSION
     Dosage: 900 MG, 1X/DAY, AT NIGHT
     Route: 048
     Dates: start: 2011
  3. HYDROCODONE [Concomitant]
     Dosage: UNK

REACTIONS (4)
  - Bronchitis [Not Recovered/Not Resolved]
  - Convulsion [Recovered/Resolved]
  - Nausea [Recovered/Resolved]
  - Panic attack [Recovered/Resolved]
